FAERS Safety Report 5884396-X (Version None)
Quarter: 2008Q3

REPORT INFORMATION
  Report Type: 
  Country: None (occurrence: None)
  Receive Date: 20080915
  Receipt Date: 20080903
  Transmission Date: 20090109
  Serious: Yes (Hospitalization, Other)
  Sender: FDA-Public Use
  Company Number: GB-PFIZER INC-2008068861

PATIENT
  Sex: Female
  Weight: 79 kg

DRUGS (9)
  1. LYRICA [Suspect]
     Indication: NEURALGIA
     Route: 048
     Dates: start: 20080801
  2. NICORANDIL [Concomitant]
  3. TRAZODONE HCL [Concomitant]
     Route: 048
  4. ATORVASTATIN CALCIUM [Concomitant]
  5. IMIDAPRIL [Concomitant]
     Route: 048
  6. ISOSORBIDE [Concomitant]
     Route: 048
  7. ACETYLSALICYLIC ACID SRT [Concomitant]
     Route: 048
  8. LABETALOL HCL [Concomitant]
     Route: 048
  9. DESOGESTREL [Concomitant]
     Dates: start: 20080723

REACTIONS (5)
  - ASTHENIA [None]
  - HYPOAESTHESIA [None]
  - INCORRECT DOSE ADMINISTERED [None]
  - LOSS OF CONSCIOUSNESS [None]
  - MUSCLE TIGHTNESS [None]
